FAERS Safety Report 5023090-4 (Version None)
Quarter: 2006Q2

REPORT INFORMATION
  Report Type: 
  Country: None (occurrence: None)
  Receive Date: 20060612
  Receipt Date: 20060602
  Transmission Date: 20061013
  Serious: Yes (Life-Threatening)
  Sender: FDA-Public Use
  Company Number: PHNU2006DE02204

PATIENT
  Age: 47 Year
  Sex: Male

DRUGS (1)
  1. TEGRETOL [Suspect]
     Indication: CONVULSION
     Dosage: 1800MG/DAY

REACTIONS (4)
  - AGGRESSION [None]
  - CARDIAC ARREST [None]
  - COMA [None]
  - DRUG INTOLERANCE [None]
